FAERS Safety Report 8427925-4 (Version None)
Quarter: 2012Q2

REPORT INFORMATION
  Report Type: 
  Country: None (occurrence: None)
  Receive Date: 20120611
  Receipt Date: 20120529
  Transmission Date: 20120825
  Serious: No
  Sender: FDA-Public Use
  Company Number: US-ASTRAZENECA-2012SE34907

PATIENT
  Age: 83 Year
  Sex: Female
  Weight: 72.6 kg

DRUGS (6)
  1. THYROID PILL [Concomitant]
  2. ACID REFLUX PILL [Concomitant]
  3. PAXIL [Concomitant]
  4. ATENOLOL [Concomitant]
     Indication: CARDIAC DISORDER
  5. SYMBICORT [Suspect]
     Indication: RESPIRATORY DISORDER
     Dosage: 80/4.5 MCG, 2 PUFFS, TWO TIMES A DAY
     Route: 055
  6. VITAMIN TAB [Concomitant]

REACTIONS (4)
  - OFF LABEL USE [None]
  - BRONCHITIS [None]
  - DRUG INEFFECTIVE FOR UNAPPROVED INDICATION [None]
  - COUGH [None]
